FAERS Safety Report 5167728-X (Version None)
Quarter: 2006Q4

REPORT INFORMATION
  Report Type: 
  Country: None (occurrence: None)
  Receive Date: 20061204
  Receipt Date: 20061204
  Transmission Date: 20070319
  Serious: Yes (Death, Hospitalization)
  Sender: FDA-Public Use
  Company Number: None

PATIENT
  Sex: Male
  Weight: 95.3 kg

DRUGS (2)
  1. CISPLATIN [Suspect]
     Dosage: 161 MG
     Dates: start: 20061108, end: 20061108
  2. ETOPOSIDE [Suspect]
     Dosage: 606 MG
     Dates: end: 20061110

REACTIONS (4)
  - EMPHYSEMA [None]
  - NECROTISING FASCIITIS [None]
  - PNEUMOTHORAX [None]
  - RESPIRATORY DISTRESS [None]
